FAERS Safety Report 5375328-1 (Version None)
Quarter: 2007Q2

REPORT INFORMATION
  Report Type: 
  Country: None (occurrence: None)
  Receive Date: 20070629
  Receipt Date: 20070621
  Transmission Date: 20071010
  Serious: Yes (Hospitalization)
  Sender: FDA-Public Use
  Company Number: JP-ASTRAZENECA-2007AP03760

PATIENT
  Age: 72 Year
  Sex: Female

DRUGS (8)
  1. NAROPIN [Suspect]
     Indication: EPIDURAL ANAESTHESIA
     Route: 008
  2. XYLOCAINE W/ EPINEPHRINE [Concomitant]
     Indication: EPIDURAL ANAESTHESIA
     Route: 008
  3. OXYGEN [Concomitant]
  4. SEVOFLURANE [Concomitant]
     Indication: GENERAL ANAESTHESIA
     Route: 055
  5. FENTANYL CITRATE [Concomitant]
     Indication: GENERAL ANAESTHESIA
  6. FENTANYL CITRATE [Concomitant]
     Indication: EPIDURAL ANAESTHESIA
  7. FENTANYL CITRATE [Concomitant]
     Route: 008
  8. FENTANYL CITRATE [Concomitant]
     Route: 008

REACTIONS (2)
  - ARTERIAL OCCLUSIVE DISEASE [None]
  - COMPARTMENT SYNDROME [None]
